FAERS Safety Report 8921304 (Version 2)
Quarter: 2013Q1

REPORT INFORMATION
  Report Type: Report from Study
  Country: CA (occurrence: CA)
  Receive Date: 20121121
  Receipt Date: 20130311
  Transmission Date: 20140127
  Serious: Yes (Hospitalization, Other)
  Sender: FDA-Public Use
  Company Number: CA-ROCHE-1031461

PATIENT
  Age: 68 None
  Sex: Female
  Weight: 86.2 kg

DRUGS (10)
  1. ACTEMRA [Suspect]
     Indication: RHEUMATOID ARTHRITIS
     Route: 042
     Dates: start: 20111116
  2. ACTEMRA [Suspect]
     Route: 042
     Dates: start: 20120202
  3. ACTEMRA [Suspect]
     Route: 042
     Dates: start: 20120822
  4. PREDNISONE [Suspect]
     Indication: PRODUCT USED FOR UNKNOWN INDICATION
     Route: 065
  5. ALDACTAZIDE [Concomitant]
  6. APO-OMEPRAZOLE [Concomitant]
  7. WARFARIN [Concomitant]
  8. LYRICA [Concomitant]
  9. AMLODIPINE [Concomitant]
  10. LOSEC (CANADA) [Concomitant]
     Route: 048

REACTIONS (13)
  - Local swelling [Recovered/Resolved]
  - Diarrhoea [Not Recovered/Not Resolved]
  - Hyperhidrosis [Not Recovered/Not Resolved]
  - Abdominal pain [Not Recovered/Not Resolved]
  - Fatigue [Not Recovered/Not Resolved]
  - Diverticulitis [Recovered/Resolved]
  - Abscess [Recovered/Resolved]
  - Pneumonia [Recovered/Resolved]
  - Swelling face [Recovered/Resolved]
  - Local swelling [Recovering/Resolving]
  - Cough [Recovering/Resolving]
  - Rhinorrhoea [Recovering/Resolving]
  - Abdominal distension [Recovering/Resolving]
